FAERS Safety Report 7104774-0 (Version None)
Quarter: 2010Q4

REPORT INFORMATION
  Report Type: 
  Country: None (occurrence: None)
  Receive Date: 20101109
  Receipt Date: 20101025
  Transmission Date: 20110411
  Serious: Yes (Hospitalization)
  Sender: FDA-Public Use
  Company Number: 2010002399

PATIENT
  Age: 69 Year
  Sex: Male
  Weight: 58 kg

DRUGS (16)
  1. ERLOTINIB (ERLOTINIB) (TABLET) (ERLOTINIB) [Suspect]
     Indication: PANCREATIC CARCINOMA METASTATIC
     Dosage: 100 MG, QD, ORAL
     Route: 048
     Dates: start: 20091210, end: 20100705
  2. GEMCITABINE [Suspect]
     Indication: PANCREATIC CARCINOMA METASTATIC
     Dosage: 1600 MG, Q1W, INTRAVENOUS
     Route: 042
     Dates: start: 20091210, end: 20100705
  3. LIV. 52 [Concomitant]
  4. DROTAVERINE [Concomitant]
  5. HEPATIL (ORNITHINE ASPARTATE) [Concomitant]
  6. BISOPROLOL FUMARATE [Concomitant]
  7. PRESTARIUM (PERINDOPRIL) [Concomitant]
  8. PANTOPRAZOLE SODIUM [Concomitant]
  9. NITRENDIPINE [Concomitant]
  10. INSULIN [Concomitant]
  11. TRAMADOL HCL [Concomitant]
  12. KETOPROFEN [Concomitant]
  13. CIPRONEX (CIPROFLOXACIN) [Concomitant]
  14. METRONIDAZOLE [Concomitant]
  15. FOLIC ACID [Concomitant]
  16. VITAMIN B6 [Concomitant]

REACTIONS (11)
  - ALANINE AMINOTRANSFERASE INCREASED [None]
  - ANAEMIA [None]
  - ASPARTATE AMINOTRANSFERASE INCREASED [None]
  - BILE DUCT OBSTRUCTION [None]
  - BLOOD BILIRUBIN INCREASED [None]
  - EOSINOPHIL COUNT DECREASED [None]
  - GAMMA-GLUTAMYLTRANSFERASE INCREASED [None]
  - JAUNDICE [None]
  - MONOCYTE COUNT INCREASED [None]
  - NEUTROPHIL COUNT INCREASED [None]
  - PYREXIA [None]
